FAERS Safety Report 24702105 (Version 2)
Quarter: 2025Q3

REPORT INFORMATION
  Report Type: Report from Study
  Country: US (occurrence: US)
  Receive Date: 20241205
  Receipt Date: 20250809
  Transmission Date: 20251021
  Serious: Yes (Hospitalization, Other)
  Sender: ALEXION PHARMACEUTICALS
  Company Number: US-AstraZeneca-CH-00761668A

PATIENT
  Sex: Female
  Weight: 73.016 kg

DRUGS (3)
  1. SELUMETINIB [Suspect]
     Active Substance: SELUMETINIB
     Indication: Nervous system neoplasm benign
     Dosage: 35 MILLIGRAM, BID
     Dates: start: 20240728
  2. SELUMETINIB [Suspect]
     Active Substance: SELUMETINIB
     Dosage: UNK UNK, Q12H
  3. SELUMETINIB [Suspect]
     Active Substance: SELUMETINIB
     Dosage: UNK UNK, Q8H

REACTIONS (3)
  - Haematemesis [Unknown]
  - Haematochezia [Unknown]
  - Overdose [Unknown]
